FAERS Safety Report 8582970-3 (Version None)
Quarter: 2012Q3

REPORT INFORMATION
  Report Type: 
  Country: None (occurrence: None)
  Receive Date: 20120809
  Receipt Date: 20120807
  Transmission Date: 20120928
  Serious: Yes (Hospitalization, Other)
  Sender: FDA-Public Use
  Company Number: JP-PFIZER INC-2012078763

PATIENT
  Age: 68 Year
  Sex: Female
  Weight: 42.2 kg

DRUGS (6)
  1. CABERGOLINE [Suspect]
     Dosage: 0.25 MG, WEEKLY
     Route: 048
     Dates: start: 20110310, end: 20110322
  2. CABERGOLINE [Suspect]
     Dosage: 0.5 MG, WEEKLY
     Route: 048
     Dates: start: 20110323, end: 20110405
  3. CABERGOLINE [Suspect]
     Dosage: 0.75 MG, WEEKLY
     Route: 048
     Dates: start: 20110406, end: 20110429
  4. CABERGOLINE [Suspect]
     Dosage: 2 MG, WEEKLY
     Route: 048
     Dates: start: 20110608, end: 20110803
  5. CABERGOLINE [Suspect]
     Dosage: 1 MG, WEEKLY
     Route: 048
     Dates: start: 20110420, end: 20110510
  6. CABERGOLINE [Suspect]
     Dosage: 1.5 MG, WEEKLY
     Route: 048
     Dates: start: 20110511, end: 20110607

REACTIONS (3)
  - DECREASED APPETITE [None]
  - SECONDARY ADRENOCORTICAL INSUFFICIENCY [None]
  - BACK PAIN [None]
